FAERS Safety Report 17663793 (Version 1)
Quarter: 2020Q2

REPORT INFORMATION
  Report Type: Spontaneous
  Country: GB (occurrence: GB)
  Receive Date: 20200414
  Receipt Date: 20200414
  Transmission Date: 20200713
  Serious: Yes (Other)
  Sender: FDA-Public Use
  Company Number: GB-TEVA-2020-GB-1222724

PATIENT
  Age: 4 Year
  Sex: Female

DRUGS (9)
  1. TOPOTECAN [Suspect]
     Active Substance: TOPOTECAN HYDROCHLORIDE
     Dosage: DURING THE THIRD CYCLE
     Route: 013
  2. MELPHALAN. [Suspect]
     Active Substance: MELPHALAN
     Dosage: FOR THREE INJECTIONS IN CYCLE 2
     Route: 013
  3. MELPHALAN. [Suspect]
     Active Substance: MELPHALAN
     Dosage: DURING CYCLE 3
     Route: 013
  4. MELPHALAN. [Suspect]
     Active Substance: MELPHALAN
     Dosage: 2 DOSES IN THE FIRST ROUND
     Route: 013
  5. TOPOTECAN [Suspect]
     Active Substance: TOPOTECAN HYDROCHLORIDE
     Dosage: THREE INJECTIONS DURING CYCLE 2
     Route: 013
  6. TOPOTECAN [Suspect]
     Active Substance: TOPOTECAN HYDROCHLORIDE
     Route: 013
  7. CARBOPLATIN. [Suspect]
     Active Substance: CARBOPLATIN
     Indication: RETINOBLASTOMA
     Route: 013
  8. MELPHALAN. [Suspect]
     Active Substance: MELPHALAN
     Dosage: FINAL DOSE IN ROUND ONE
     Route: 013
  9. TOPOTECAN [Suspect]
     Active Substance: TOPOTECAN HYDROCHLORIDE
     Indication: RETINOBLASTOMA
     Dosage: TOTAL 3 DOSES IN THE FIRST ROUND
     Route: 013

REACTIONS (4)
  - Anterior segment ischaemia [Recovered/Resolved]
  - Eyelid ptosis [Recovering/Resolving]
  - Rash [Unknown]
  - Swelling of eyelid [Unknown]
